FAERS Safety Report 8950909 (Version 2)
Quarter: 2013Q1

REPORT INFORMATION
  Report Type: Spontaneous
  Country: JP (occurrence: JP)
  Receive Date: 20121207
  Receipt Date: 20130104
  Transmission Date: 20140127
  Serious: Yes (Other)
  Sender: FDA-Public Use
  Company Number: JP-JHP PHARMACEUTICALS, LLC-JHP201200569

PATIENT
  Sex: Female

DRUGS (1)
  1. DANTRIUM [Suspect]
     Indication: MUSCLE SPASTICITY
     Route: 048

REACTIONS (2)
  - Oral candidiasis [Not Recovered/Not Resolved]
  - Nausea [Not Recovered/Not Resolved]
